FAERS Safety Report 7690722-1 (Version None)
Quarter: 2011Q3

REPORT INFORMATION
  Report Type: 
  Country: None (occurrence: None)
  Receive Date: 20110818
  Receipt Date: 20110815
  Transmission Date: 20111222
  Serious: No
  Sender: FDA-Public Use
  Company Number: US-PFIZER INC-2011187348

PATIENT
  Sex: Female
  Weight: 109 kg

DRUGS (6)
  1. ACETYLSALICYLIC ACID [Concomitant]
     Dosage: 81 MG, UNK
  2. CARVEDILOL [Concomitant]
     Dosage: 12.5 MG, UNK
  3. ZYRTEC [Concomitant]
     Dosage: 10 MG, UNK
  4. FISH OIL [Concomitant]
     Dosage: UNK
  5. SUTENT [Suspect]
     Dosage: 50 MG (1 CAP) EVERY DAY FOR 4 WEEKS, THEN 2 WEEKS OFF
     Route: 048
  6. CIMETIDINE [Concomitant]
     Dosage: 200 MG, UNK

REACTIONS (2)
  - DYSPEPSIA [None]
  - ERYTHEMA [None]
